FAERS Safety Report 9449206 (Version 1)
Quarter: 2013Q3

REPORT INFORMATION
  Report Type: Spontaneous
  Country: US (occurrence: None)
  Receive Date: 20130806
  Receipt Date: 20130806
  Transmission Date: 20140515
  Serious: Yes (Other)
  Sender: FDA-Public Use
  Company Number: TPA2013A07368

PATIENT
  Sex: Male

DRUGS (1)
  1. DEXILANT (DEXLANSOPRAZOLE) [Suspect]
     Route: 048
     Dates: start: 2013, end: 2013

REACTIONS (8)
  - Convulsion [None]
  - Swollen tongue [None]
  - Pharyngeal oedema [None]
  - Fall [None]
  - Tooth fracture [None]
  - Loss of consciousness [None]
  - Haematoma [None]
  - Concussion [None]
